FAERS Safety Report 26197228 (Version 2)
Quarter: 2025Q4

REPORT INFORMATION
  Report Type: Report from Study
  Country: US (occurrence: US)
  Receive Date: 20251224
  Receipt Date: 20251229
  Transmission Date: 20260117
  Serious: Yes (Death, Other)
  Sender: MALLINCKRODT
  Company Number: US-MALLINCKRODT-MNK202508067

PATIENT
  Age: 98 Year
  Sex: Female

DRUGS (1)
  1. CORTICOTROPIN [Suspect]
     Active Substance: CORTICOTROPIN
     Indication: Dry eye
     Dosage: UNKNOWN

REACTIONS (4)
  - Death [Fatal]
  - Malignant neoplasm of eye [Unknown]
  - Atrial fibrillation [Unknown]
  - Cardiac disorder [Unknown]

NARRATIVE: CASE EVENT DATE: 20251217
